FAERS Safety Report 7949226-0 (Version None)
Quarter: 2011Q4

REPORT INFORMATION
  Report Type: 
  Country: None (occurrence: None)
  Receive Date: 20111130
  Receipt Date: 20111118
  Transmission Date: 20120403
  Serious: Yes (Death, Hospitalization)
  Sender: FDA-Public Use
  Company Number: US-OPTIMER-20110054

PATIENT

DRUGS (3)
  1. DIFICID [Suspect]
     Indication: CLOSTRIDIUM DIFFICILE COLITIS
     Dosage: 200 MG, BID
     Route: 048
     Dates: start: 20111105, end: 20111114
  2. VANCOMYCIN [Suspect]
     Indication: CLOSTRIDIUM DIFFICILE COLITIS
     Dosage: UNK
     Route: 048
  3. FLAGYL [Suspect]
     Indication: CLOSTRIDIUM DIFFICILE COLITIS
     Route: 042

REACTIONS (10)
  - RESPIRATORY FAILURE [None]
  - ENTEROCOLITIS HAEMORRHAGIC [None]
  - BONE MARROW TOXICITY [None]
  - THROMBOCYTOPENIA [None]
  - RENAL FAILURE [None]
  - MOUTH ULCERATION [None]
  - PANCYTOPENIA [None]
  - RECTAL HAEMORRHAGE [None]
  - PSEUDOMEMBRANOUS COLITIS [None]
  - GASTROINTESTINAL HAEMORRHAGE [None]
